FAERS Safety Report 14163211 (Version 1)
Quarter: 2017Q4

REPORT INFORMATION
  Report Type: Spontaneous
  Country: IL (occurrence: IL)
  Receive Date: 20171107
  Receipt Date: 20171107
  Transmission Date: 20180321
  Serious: Yes (Hospitalization)
  Sender: FDA-Public Use
  Company Number: IL-ENDO PHARMACEUTICALS INC-2017-005841

PATIENT
  Age: 16 Year
  Sex: Male

DRUGS (1)
  1. PROPRANOLOL HCL TABLETS 80MG [Suspect]
     Active Substance: PROPRANOLOL HYDROCHLORIDE
     Indication: PRODUCT USED FOR UNKNOWN INDICATION
     Dosage: 3200 MG, SINGLE
     Route: 048

REACTIONS (4)
  - Suicide attempt [Unknown]
  - Toxicity to various agents [Recovered/Resolved]
  - Congestive cardiomyopathy [Recovered/Resolved]
  - Neurotoxicity [Recovered/Resolved]
